FAERS Safety Report 4387342-3 (Version None)
Quarter: 2004Q2

REPORT INFORMATION
  Report Type: 
  Country: None (occurrence: None)
  Receive Date: 20040630
  Receipt Date: 20040413
  Transmission Date: 20050107
  Serious: No
  Sender: FDA-Public Use
  Company Number: US-GLAXOSMITHKLINE-A0506921A

PATIENT
  Age: 47 Year
  Sex: Female

DRUGS (1)
  1. ADVAIR HFA [Suspect]
     Indication: ASTHMA
     Route: 055
     Dates: start: 20040404, end: 20040408

REACTIONS (5)
  - ABDOMINAL PAIN UPPER [None]
  - CHEST PAIN [None]
  - COUGH [None]
  - ILL-DEFINED DISORDER [None]
  - PHARMACEUTICAL PRODUCT COMPLAINT [None]
